FAERS Safety Report 12690199 (Version 9)
Quarter: 2020Q2

REPORT INFORMATION
  Report Type: Report from Study
  Country: US (occurrence: US)
  Receive Date: 20160826
  Receipt Date: 20200629
  Transmission Date: 20200713
  Serious: Yes (Hospitalization)
  Sender: FDA-Public Use
  Company Number: US-ACTELION-A-NJ2016-141053

PATIENT
  Age: 66 Year
  Sex: Female
  Weight: 80.73 kg

DRUGS (18)
  1. PRILOSEC [Concomitant]
     Active Substance: OMEPRAZOLE MAGNESIUM
     Dosage: 20 MG, UNK
  2. GLIPIZIDE. [Concomitant]
     Active Substance: GLIPIZIDE
  3. PHENERGAN [Concomitant]
     Active Substance: PROMETHAZINE HYDROCHLORIDE
  4. OPSUMIT [Suspect]
     Active Substance: MACITENTAN
     Indication: PULMONARY ARTERIAL HYPERTENSION
     Dosage: 10 MG, QD
     Route: 048
     Dates: start: 20150121
  5. TIKOSYN [Concomitant]
     Active Substance: DOFETILIDE
     Dosage: 125 MCG, UNK
  6. SIMVASTATIN. [Concomitant]
     Active Substance: SIMVASTATIN
  7. VITAMIN E [Concomitant]
     Active Substance: .ALPHA.-TOCOPHEROL
  8. ATIVAN [Concomitant]
     Active Substance: LORAZEPAM
  9. VITAMIN D3 [Concomitant]
     Active Substance: CHOLECALCIFEROL
  10. CALCIUM + VITAMIN D3 [Concomitant]
     Active Substance: CALCIUM CARBONATE\CHOLECALCIFEROL
  11. MULTIVITAMIN [Concomitant]
     Active Substance: VITAMINS
  12. METOPROLOL TARTRATE. [Concomitant]
     Active Substance: METOPROLOL TARTRATE
     Dosage: 50 MG, UNK
  13. TESSALON [Concomitant]
     Active Substance: BENZONATATE
  14. GLUCOSE [Concomitant]
     Active Substance: DEXTROSE
  15. OPSUMIT [Suspect]
     Active Substance: MACITENTAN
     Dosage: 10 MG. QD
     Route: 048
  16. LASIX [Concomitant]
     Active Substance: FUROSEMIDE
     Dosage: 20 MG, UNK
  17. LANTUS [Concomitant]
     Active Substance: INSULIN GLARGINE
  18. XARELTO [Concomitant]
     Active Substance: RIVAROXABAN
     Dosage: 10 MG, UNK

REACTIONS (10)
  - Pulmonary oedema [Recovering/Resolving]
  - Device dislocation [Unknown]
  - Product dose omission [Recovering/Resolving]
  - Chest discomfort [Not Recovered/Not Resolved]
  - Bronchitis [Recovered/Resolved]
  - Pneumonia [Recovered/Resolved]
  - Mouth haemorrhage [Not Recovered/Not Resolved]
  - Cough [Recovering/Resolving]
  - Tooth extraction [Not Recovered/Not Resolved]
  - Epistaxis [Unknown]

NARRATIVE: CASE EVENT DATE: 20160813
